FAERS Safety Report 5626273-5 (Version None)
Quarter: 2008Q1

REPORT INFORMATION
  Report Type: 
  Country: None (occurrence: None)
  Receive Date: 20080213
  Receipt Date: 20080213
  Transmission Date: 20080703
  Serious: Yes (Other)
  Sender: FDA-Public Use
  Company Number: None

PATIENT
  Age: 56 Year
  Sex: Female
  Weight: 65.7716 kg

DRUGS (1)
  1. BONIVA [Suspect]
     Indication: BONE DISORDER
     Dosage: ONCE MONTHLY
     Dates: start: 20070301

REACTIONS (4)
  - FATIGUE [None]
  - FEELING ABNORMAL [None]
  - HYPERSOMNIA [None]
  - WEIGHT DECREASED [None]
